FAERS Safety Report 6831160-0 (Version None)
Quarter: 2010Q3

REPORT INFORMATION
  Report Type: 
  Country: None (occurrence: None)
  Receive Date: 20100712
  Receipt Date: 20100629
  Transmission Date: 20110219
  Serious: Yes (Death)
  Sender: FDA-Public Use
  Company Number: PL-JNJFOC-20100700586

PATIENT
  Age: 44 Year
  Sex: Male

DRUGS (4)
  1. ABCIXIMAB [Suspect]
     Indication: STENT PLACEMENT
     Route: 013
  2. ACETYLSALICYLIC ACID [Concomitant]
     Indication: INTRACRANIAL ANEURYSM
  3. HEPARIN [Concomitant]
     Indication: INTRACRANIAL ANEURYSM
     Dosage: 5000 UNITS
     Route: 042
  4. FRAXIPARINE [Concomitant]
     Indication: INTRACRANIAL ANEURYSM
     Dosage: 0.3-0.6 ML EVERY 12 HOURS

REACTIONS (2)
  - INCORRECT ROUTE OF DRUG ADMINISTRATION [None]
  - RUPTURED CEREBRAL ANEURYSM [None]
